FAERS Safety Report 7351780-7 (Version None)
Quarter: 2011Q1

REPORT INFORMATION
  Report Type: 
  Country: None (occurrence: None)
  Receive Date: 20110315
  Receipt Date: 20101123
  Transmission Date: 20110831
  Serious: Yes (Hospitalization, Other)
  Sender: FDA-Public Use
  Company Number: US-BAYER-201038115NA

PATIENT
  Sex: Female
  Weight: 92.517 kg

DRUGS (9)
  1. YASMIN [Suspect]
     Indication: ACNE
     Dosage: UNK
     Dates: start: 20030101, end: 20080101
  2. ASPIRIN [Concomitant]
     Indication: HEADACHE
  3. YASMIN [Suspect]
     Indication: CONTRACEPTION
  4. EFFEXOR [Concomitant]
  5. CELEXA [Concomitant]
     Indication: DEPRESSION
  6. ALEVE [Concomitant]
  7. LEXAPRO [Concomitant]
  8. XANAX [Concomitant]
     Indication: ANXIETY
  9. MOTRIN [Concomitant]

REACTIONS (7)
  - MICTURITION URGENCY [None]
  - NEPHROLITHIASIS [None]
  - BACK PAIN [None]
  - ABDOMINAL PAIN [None]
  - DYSURIA [None]
  - PELVIC PAIN [None]
  - INJURY [None]
